FAERS Safety Report 18952010 (Version 2)
Quarter: 2021Q1

REPORT INFORMATION
  Report Type: Report from Study
  Country: US (occurrence: US)
  Receive Date: 20210301
  Receipt Date: 20210316
  Transmission Date: 20210420
  Serious: Yes (Hospitalization, Congenital Anomaly, Other)
  Sender: FDA-Public Use
  Company Number: US-AUROBINDO-AUR-APL-2021-007701

PATIENT
  Sex: Male
  Weight: 3.17 kg

DRUGS (2)
  1. OMEPRAZOLE. [Suspect]
     Active Substance: OMEPRAZOLE
     Indication: PRODUCT USED FOR UNKNOWN INDICATION
     Dosage: UNK
     Route: 064
  2. SEROQUEL [Suspect]
     Active Substance: QUETIAPINE FUMARATE
     Indication: PRODUCT USED FOR UNKNOWN INDICATION
     Dosage: UNK
     Route: 064

REACTIONS (8)
  - Neonatal respiratory distress syndrome [Unknown]
  - Hydronephrosis [Not Recovered/Not Resolved]
  - Limb malformation [Unknown]
  - Transient tachypnoea of the newborn [Unknown]
  - Pelvi-ureteric obstruction [Unknown]
  - Anomaly of external ear congenital [Unknown]
  - Neonatal pneumonia [Unknown]
  - Foetal exposure during pregnancy [Unknown]

NARRATIVE: CASE EVENT DATE: 20171127
